FAERS Safety Report 7701713-6 (Version None)
Quarter: 2011Q3

REPORT INFORMATION
  Report Type: 
  Country: None (occurrence: None)
  Receive Date: 20110822
  Receipt Date: 20110714
  Transmission Date: 20111222
  Serious: Yes (Death, Hospitalization)
  Sender: FDA-Public Use
  Company Number: US-AMGEN-US393442

PATIENT
  Age: 60 Year
  Sex: Male

DRUGS (12)
  1. WARFARIN SODIUM [Concomitant]
     Dosage: 1 MG, UNK
     Route: 048
     Dates: start: 20070904, end: 20100219
  2. PANITUMUMAB [Suspect]
     Indication: COLORECTAL CANCER
     Dosage: 376 MG, Q2WK
     Route: 042
     Dates: start: 20100127, end: 20100210
  3. ZOLPIDEM TARTRATE [Concomitant]
     Dosage: 5 MG, UNK
     Route: 048
     Dates: start: 20100127, end: 20100219
  4. MEGESTROL ACETATE [Concomitant]
     Dosage: 800 MG, UNK
     Route: 048
     Dates: start: 20091020, end: 20100219
  5. ATROPINE [Concomitant]
     Dosage: .4 MG, UNK
     Route: 042
     Dates: start: 20100127, end: 20100219
  6. LEUCOVORIN CALCIUM [Concomitant]
     Dosage: 713 MG, Q2WK
     Route: 042
     Dates: start: 20100127, end: 20100219
  7. ACETAMINOPHEN AND HYDROCODONE BITARTRATE [Concomitant]
     Dosage: UNK UNK, UNK
     Route: 048
     Dates: start: 20090103, end: 20100219
  8. IRINOTECAN HCL [Concomitant]
     Dosage: 320 MG, Q2WK
     Route: 042
     Dates: start: 20100127, end: 20100219
  9. FLUOROURACIL [Concomitant]
     Dosage: 710 MG, Q2WK
     Route: 042
     Dates: start: 20100127, end: 20100219
  10. PALONOSETRON HYDROCHLORIDE [Concomitant]
     Dosage: .25 MG, UNK
     Route: 042
     Dates: start: 20100127, end: 20100219
  11. MORPHINE SULFATE [Concomitant]
     Dosage: 200 MG, PRN
     Route: 048
     Dates: start: 20100201, end: 20100219
  12. DEXAMETHASONE [Concomitant]
     Dosage: 10 MG, UNK
     Route: 042
     Dates: start: 20100127, end: 20100209

REACTIONS (1)
  - SEPSIS [None]
